FAERS Safety Report 7523401-1 (Version None)
Quarter: 2011Q2

REPORT INFORMATION
  Report Type: 
  Country: None (occurrence: None)
  Receive Date: 20110603
  Receipt Date: 20110601
  Transmission Date: 20111010
  Serious: Yes (Hospitalization)
  Sender: FDA-Public Use
  Company Number: B0723219A

PATIENT
  Sex: Female
  Weight: 52 kg

DRUGS (5)
  1. ATROPINE [Concomitant]
     Dosage: .5MG UNKNOWN
     Route: 065
     Dates: start: 20110413
  2. LASIX [Concomitant]
     Dosage: 80MG UNKNOWN
     Route: 065
     Dates: start: 20110413
  3. ARIXTRA [Suspect]
     Indication: THROMBOSIS PROPHYLAXIS
     Dosage: 2.5MG PER DAY
     Route: 058
     Dates: start: 20110413, end: 20110425
  4. RISORDAN [Concomitant]
     Dosage: 11MG UNKNOWN
     Route: 065
     Dates: start: 20110413
  5. OFLOXACIN [Concomitant]
     Route: 065
     Dates: end: 20110425

REACTIONS (8)
  - HAEMATOMA [None]
  - PURPURA [None]
  - RENAL FAILURE [None]
  - BLISTER [None]
  - OLIGURIA [None]
  - PYREXIA [None]
  - ANAEMIA [None]
  - INFECTION [None]
